FAERS Safety Report 4893694-8 (Version None)
Quarter: 2005Q4

REPORT INFORMATION
  Report Type: 
  Country: None (occurrence: None)
  Receive Date: 20051223
  Receipt Date: 20050928
  Transmission Date: 20060501
  Serious: No
  Sender: FDA-Public Use
  Company Number: 2005PV002590

PATIENT
  Age: 69 Year
  Sex: Female
  Weight: 94.8018 kg

DRUGS (7)
  1. SYMLIN [Suspect]
     Indication: DIABETES MELLITUS NON-INSULIN-DEPENDENT
     Dosage: 60 MCG;SC, 120 MCG;SC
     Route: 058
     Dates: start: 20050913, end: 20050917
  2. SYMLIN [Suspect]
     Indication: DIABETES MELLITUS NON-INSULIN-DEPENDENT
     Dosage: 60 MCG;SC, 120 MCG;SC
     Route: 058
     Dates: start: 20050918
  3. CYCLOSPORINE [Concomitant]
  4. HUMALOG [Concomitant]
  5. NPH INSULIN [Concomitant]
  6. GLYBURIDE [Concomitant]
  7. ASPIRIN [Concomitant]

REACTIONS (2)
  - INJECTION SITE BRUISING [None]
  - TENSION [None]
